FAERS Safety Report 16417253 (Version 1)
Quarter: 2019Q2

REPORT INFORMATION
  Report Type: Report from Study
  Country: US (occurrence: US)
  Receive Date: 20190611
  Receipt Date: 20190611
  Transmission Date: 20190711
  Serious: Yes (Hospitalization)
  Sender: FDA-Public Use
  Company Number: US-ACTELION-A-US2019-191464

PATIENT
  Age: 5 Year
  Sex: Male

DRUGS (1)
  1. BOSENTAN TABLET 32 MG PED US [Suspect]
     Active Substance: BOSENTAN
     Indication: PULMONARY ARTERIAL HYPERTENSION
     Dosage: 16 MG, BID
     Route: 048
     Dates: start: 20180123

REACTIONS (1)
  - Airway remodelling [Recovered/Resolved]

NARRATIVE: CASE EVENT DATE: 20190524
